FAERS Safety Report 7414147-9 (Version None)
Quarter: 2011Q2

REPORT INFORMATION
  Report Type: 
  Country: None (occurrence: None)
  Receive Date: 20110414
  Receipt Date: 20110407
  Transmission Date: 20111010
  Serious: Yes (Other)
  Sender: FDA-Public Use
  Company Number: FR-PFIZER INC-2011076782

PATIENT
  Age: 59 Year
  Sex: Female

DRUGS (3)
  1. EFFEXOR XR [Suspect]
     Dosage: UNK
     Route: 048
     Dates: start: 19990101
  2. EVISTA [Concomitant]
     Route: 048
  3. LEVOTHYROX [Concomitant]
     Dosage: 50 UG, 1X/DAY
     Route: 048

REACTIONS (1)
  - SCOTOMA [None]
